FAERS Safety Report 20767973 (Version 2)
Quarter: 2025Q3

REPORT INFORMATION
  Report Type: Spontaneous
  Country: GB (occurrence: GB)
  Receive Date: 20220429
  Receipt Date: 20250827
  Transmission Date: 20251020
  Serious: Yes (Other)
  Sender: ADVANZ PHARMA
  Company Number: None

PATIENT

DRUGS (2)
  1. ZONISAMIDE [Interacting]
     Active Substance: ZONISAMIDE
  2. CLOZARIL [Interacting]
     Active Substance: CLOZAPINE

REACTIONS (24)
  - Neutropenia [Unknown]
  - Agranulocytosis [Unknown]
  - Viral infection [Unknown]
  - Nasopharyngitis [Unknown]
  - Oropharyngeal pain [Unknown]
  - Ear pain [Unknown]
  - Tonsillar inflammation [Unknown]
  - Oropharyngeal pain [Unknown]
  - Palpitations [Unknown]
  - Myoclonic dystonia [Unknown]
  - Malaise [Unknown]
  - Pharyngitis [Unknown]
  - Tachycardia [Unknown]
  - Chest pain [Unknown]
  - Headache [Unknown]
  - Dehydration [Unknown]
  - Ear pain [Unknown]
  - Tonsillar exudate [Unknown]
  - Eye pain [Unknown]
  - Dizziness [Unknown]
  - Fatigue [Unknown]
  - Eye pain [Unknown]
  - Drug interaction [Unknown]
  - Product prescribing issue [Unknown]

NARRATIVE: CASE EVENT DATE: 20211124
